FAERS Safety Report 8612483-1 (Version None)
Quarter: 2012Q3

REPORT INFORMATION
  Report Type: 
  Country: None (occurrence: None)
  Receive Date: 20120822
  Receipt Date: 20120813
  Transmission Date: 20120928
  Serious: Yes (Other)
  Sender: FDA-Public Use
  Company Number: US-ASTRAZENECA-2011SE46083

PATIENT
  Age: 46 Year
  Sex: Female

DRUGS (11)
  1. HYDROTHYCHLORIZIDE [Concomitant]
  2. REMERON [Concomitant]
  3. ABILIFY [Concomitant]
  4. OMEPRAZOLE [Suspect]
     Route: 048
  5. ZOCOR [Concomitant]
  6. NEXIUM [Suspect]
     Indication: GASTROOESOPHAGEAL REFLUX DISEASE
     Route: 048
  7. LYRICE [Concomitant]
  8. CYMBALTA [Concomitant]
  9. ZYRTEC [Concomitant]
  10. NEURONTIN [Concomitant]
  11. HYDROXYZINE HCL [Concomitant]

REACTIONS (8)
  - TYPE 2 DIABETES MELLITUS [None]
  - DYSPEPSIA [None]
  - DRUG DOSE OMISSION [None]
  - GASTRIC DISORDER [None]
  - MALAISE [None]
  - ANKLE FRACTURE [None]
  - MEMORY IMPAIRMENT [None]
  - VOMITING [None]
